FAERS Safety Report 10201631 (Version 1)
Quarter: 2014Q2

REPORT INFORMATION
  Report Type: Spontaneous
  Country: CZ (occurrence: CZ)
  Receive Date: 20140528
  Receipt Date: 20140528
  Transmission Date: 20141212
  Serious: Yes (Death, Other)
  Sender: FDA-Public Use
  Company Number: CZ-TEVA-457466ISR

PATIENT
  Age: 26 Year
  Sex: Female
  Weight: 140 kg

DRUGS (1)
  1. PENBENE 1 500 000 [Suspect]
     Indication: TONSILLITIS BACTERIAL
     Route: 048
     Dates: start: 20140110, end: 20140110

REACTIONS (3)
  - Dyspnoea [Fatal]
  - Death [Fatal]
  - Pulmonary embolism [None]
